FAERS Safety Report 4285428-5 (Version None)
Quarter: 2004Q1

REPORT INFORMATION
  Report Type: 
  Country: None (occurrence: None)
  Receive Date: 20040202
  Receipt Date: 20040202
  Transmission Date: 20041129
  Serious: Yes (Other)
  Sender: FDA-Public Use
  Company Number: None

PATIENT
  Age: 51 Year
  Sex: Male

DRUGS (4)
  1. NEXIUM [Suspect]
     Indication: GASTROOESOPHAGEAL REFLUX DISEASE
     Dosage: (40 MG) ONE DAILY ORAL
     Route: 048
     Dates: start: 20031001, end: 20031201
  2. ALLOPURINOL [Concomitant]
  3. IMIPRAMINE [Concomitant]
  4. NADOLOL [Concomitant]

REACTIONS (1)
  - DYSPNOEA [None]
